FAERS Safety Report 6160349-1 (Version None)
Quarter: 2009Q2

REPORT INFORMATION
  Report Type: 
  Country: None (occurrence: None)
  Receive Date: 20090415
  Receipt Date: 20090415
  Transmission Date: 20091009
  Serious: No
  Sender: FDA-Public Use
  Company Number: None

PATIENT
  Sex: Male
  Weight: 60.5552 kg

DRUGS (2)
  1. KEPPRA [Suspect]
     Indication: GRAND MAL CONVULSION
     Dosage: KEPPRA - LEVETIRACETAM 1/2 TAB 2X PER DAY PO
     Route: 048
     Dates: start: 20090321, end: 20090409
  2. KEPPRA [Suspect]
     Indication: LENNOX-GASTAUT SYNDROME
     Dosage: KEPPRA - LEVETIRACETAM 1/2 TAB 2X PER DAY PO
     Route: 048
     Dates: start: 20090321, end: 20090409

REACTIONS (9)
  - ABNORMAL BEHAVIOUR [None]
  - AGGRESSION [None]
  - AGITATION [None]
  - ANOREXIA [None]
  - IRRITABILITY [None]
  - MUSCLE DISORDER [None]
  - OBSESSIVE-COMPULSIVE DISORDER [None]
  - RESTLESSNESS [None]
  - UNEVALUABLE EVENT [None]
